FAERS Safety Report 4821577-8 (Version None)
Quarter: 2005Q4

REPORT INFORMATION
  Report Type: 
  Country: None (occurrence: None)
  Receive Date: 20051103
  Receipt Date: 20051103
  Transmission Date: 20060501
  Serious: Yes (Other)
  Sender: FDA-Public Use
  Company Number: None

PATIENT
  Age: 79 Year
  Sex: Male
  Weight: 94.5 kg

DRUGS (2)
  1. BACTRIM DS [Suspect]
     Indication: ANTIBIOTIC PROPHYLAXIS
     Dosage: BID PO ON MON/WED/FRI
     Route: 048
     Dates: start: 20050712, end: 20050713
  2. BACTRIM DS [Suspect]
     Indication: PROPHYLAXIS
     Dosage: BID PO ON MON/WED/FRI
     Route: 048
     Dates: start: 20050712, end: 20050713

REACTIONS (2)
  - PYREXIA [None]
  - RASH [None]
